FAERS Safety Report 10014048 (Version 3)
Quarter: 2014Q2

REPORT INFORMATION
  Report Type: Report from Study
  Country: BE (occurrence: BE)
  Receive Date: 20140317
  Receipt Date: 20140618
  Transmission Date: 20141212
  Serious: Yes (Hospitalization)
  Sender: FDA-Public Use
  Company Number: BE-AMGEN-BELCT2014017326

PATIENT
  Age: 57 Year
  Sex: Female
  Weight: 74.5 kg

DRUGS (4)
  1. CINACALCET HCL [Suspect]
     Indication: HYPERPARATHYROIDISM SECONDARY
     Dosage: 30 MG, UNK
     Route: 065
     Dates: start: 20140225
  2. VALPROATE [Concomitant]
     Dosage: 500 MG, UNK
     Route: 048
     Dates: start: 20130409
  3. ASAFLOW [Concomitant]
     Dosage: 80 MG, UNK
     Route: 048
     Dates: start: 20131121
  4. 1-ALPHA [Concomitant]
     Dosage: 0.25 MUG, UNK
     Route: 048
     Dates: start: 20121106

REACTIONS (1)
  - Somnolence [Recovered/Resolved]
